FAERS Safety Report 19158539 (Version 2)
Quarter: 2021Q2

REPORT INFORMATION
  Report Type: Spontaneous
  Country: CA (occurrence: CA)
  Receive Date: 20210420
  Receipt Date: 20210430
  Transmission Date: 20210717
  Serious: Yes (Hospitalization, Other)
  Sender: FDA-Public Use
  Company Number: CA-OTSUKA-2021_009540

PATIENT
  Age: 69 Year
  Sex: Female

DRUGS (2)
  1. ABILIFY MAINTENA [Suspect]
     Active Substance: ARIPIPRAZOLE
     Indication: PRODUCT USED FOR UNKNOWN INDICATION
     Dosage: 400 MG, QM
     Route: 065
     Dates: end: 202103
  2. INVEGA [Concomitant]
     Active Substance: PALIPERIDONE
     Indication: PRODUCT USED FOR UNKNOWN INDICATION
     Dosage: UNK
     Route: 065

REACTIONS (13)
  - Asthenia [Unknown]
  - Influenza [Unknown]
  - Hypotension [Unknown]
  - Eye pain [Unknown]
  - Urticaria [Unknown]
  - Refusal of treatment by patient [Unknown]
  - Chest pain [Unknown]
  - Blindness unilateral [Unknown]
  - Injection site pain [Recovered/Resolved]
  - Breath sounds abnormal [Unknown]
  - Eye infection [Unknown]
  - Screaming [Unknown]
  - Headache [Unknown]

NARRATIVE: CASE EVENT DATE: 20210311
